FAERS Safety Report 18682013 (Version 2)
Quarter: 2021Q1

REPORT INFORMATION
  Report Type: Spontaneous
  Country: US (occurrence: US)
  Receive Date: 20201230
  Receipt Date: 20210105
  Transmission Date: 20210419
  Serious: Yes (Other)
  Sender: FDA-Public Use
  Company Number: US-PFIZER INC-2020510570

PATIENT
  Age: 47 Year
  Sex: Female

DRUGS (4)
  1. EPINEPHRINE HYDROCHLORIDE/LIDOCAINE HYDROCHLORIDE [Concomitant]
     Indication: INFILTRATION ANAESTHESIA
     Dosage: 72 MG LIDOCAINE WITH EPINEPHRINE 1:100,000
     Dates: start: 19730913
  2. PHENERGAN [Suspect]
     Active Substance: PROMETHAZINE HYDROCHLORIDE
     Indication: PAIN
     Dosage: 25 MG
     Route: 030
     Dates: start: 197309
  3. PENICILLIN G SODIUM. [Concomitant]
     Active Substance: PENICILLIN G SODIUM
     Dosage: 2.0 MILLION UNITS, EVERY 4 HRS
     Dates: start: 19730913
  4. DEMEROL [Suspect]
     Active Substance: MEPERIDINE HYDROCHLORIDE
     Indication: PAIN
     Dosage: 50 MG
     Route: 030
     Dates: start: 19730913

REACTIONS (4)
  - Hypotension [Recovered/Resolved]
  - Drug hypersensitivity [Unknown]
  - Respiratory depression [Recovered/Resolved]
  - Cheyne-Stokes respiration [Recovered/Resolved]

NARRATIVE: CASE EVENT DATE: 197309
